FAERS Safety Report 7136079-6 (Version None)
Quarter: 2010Q4

REPORT INFORMATION
  Report Type: 
  Country: None (occurrence: None)
  Receive Date: 20101204
  Receipt Date: 20101122
  Transmission Date: 20110411
  Serious: Yes (Other)
  Sender: FDA-Public Use
  Company Number: US-BAYER-201042078NA

PATIENT

DRUGS (1)
  1. YASMIN [Suspect]
     Route: 048

REACTIONS (1)
  - CHOLELITHIASIS [None]
